FAERS Safety Report 16445633 (Version 1)
Quarter: 2019Q2

REPORT INFORMATION
  Report Type: Spontaneous
  Country: DE (occurrence: DE)
  Receive Date: 20190618
  Receipt Date: 20190618
  Transmission Date: 20190711
  Serious: Yes (Other)
  Sender: FDA-Public Use
  Company Number: DE-MYLANLABS-2019M1055905

PATIENT
  Age: 56 Year
  Sex: Male

DRUGS (1)
  1. CLINDAMYCIN. [Suspect]
     Active Substance: CLINDAMYCIN
     Indication: ANTIBIOTIC PROPHYLAXIS
     Dosage: DAILY ORAL DOSE OF 1.2 G PER DAY FOR 10 DAYS
     Route: 048

REACTIONS (2)
  - Graft infection [Unknown]
  - Abscess [Unknown]
